FAERS Safety Report 5534317-4 (Version None)
Quarter: 2007Q4

REPORT INFORMATION
  Report Type: 
  Country: None (occurrence: None)
  Receive Date: 20071205
  Receipt Date: 20071126
  Transmission Date: 20080405
  Serious: Yes (Other)
  Sender: FDA-Public Use
  Company Number: CA-JNJFOC-20061000484

PATIENT
  Sex: Female
  Weight: 77.2 kg

DRUGS (4)
  1. REMICADE [Suspect]
     Route: 042
  2. REMICADE [Suspect]
     Dosage: 3 INFUSIONS ON UNSPECIFIED DATES IN 2006
     Route: 042
  3. REMICADE [Suspect]
     Indication: CROHN'S DISEASE
     Route: 042
  4. SOLU-CORTEF [Concomitant]
     Indication: PREMEDICATION

REACTIONS (2)
  - DRY SKIN [None]
  - EPISTAXIS [None]
